FAERS Safety Report 8212299-4 (Version None)
Quarter: 2012Q1

REPORT INFORMATION
  Report Type: 
  Country: None (occurrence: None)
  Receive Date: 20120315
  Receipt Date: 20120229
  Transmission Date: 20120608
  Serious: Yes (Death, Hospitalization, Other)
  Sender: FDA-Public Use
  Company Number: JP-ROCHE-794827

PATIENT
  Sex: Male

DRUGS (3)
  1. BEVACIZUMAB [Suspect]
     Indication: COLORECTAL CANCER
     Route: 042
     Dates: start: 20100831, end: 20101101
  2. TS-1 [Concomitant]
     Indication: COLON CANCER METASTATIC
     Route: 048
     Dates: start: 20100831, end: 20101104
  3. OXALIPLATIN [Concomitant]
     Indication: COLON CANCER METASTATIC
     Route: 041
     Dates: start: 20100831, end: 20101104

REACTIONS (3)
  - COLON CANCER METASTATIC [None]
  - GASTROINTESTINAL STOMA COMPLICATION [None]
  - NEUTROPENIA [None]
